FAERS Safety Report 7669147-0 (Version None)
Quarter: 2011Q3

REPORT INFORMATION
  Report Type: 
  Country: None (occurrence: None)
  Receive Date: 20110808
  Receipt Date: 20110725
  Transmission Date: 20111222
  Serious: Yes (Hospitalization)
  Sender: FDA-Public Use
  Company Number: PHHY2011FR67957

PATIENT
  Sex: Male

DRUGS (13)
  1. ESOMEPRAZOLE MAGNESIUM [Concomitant]
     Indication: GASTROINTESTINAL DISORDER
     Dosage: 40 MG, QD
     Dates: end: 20060601
  2. TRAMADOL HCL [Concomitant]
     Dosage: 50 MG, QID
  3. COLCHICINE [Concomitant]
     Dosage: 1 MG, PER DAY
  4. KINERET [Concomitant]
     Indication: SCHNITZLER'S SYNDROME
     Dosage: 100 MG, PER DAY
     Route: 058
     Dates: start: 20060801, end: 20110606
  5. POTASSIUM CHLORIDE [Concomitant]
     Indication: HYPOKALAEMIA
     Dosage: UNK UKN, UNK
     Route: 048
     Dates: end: 20110606
  6. FUNGIZONE [Concomitant]
     Dosage: 3 TIMES/DAY
  7. LASIX [Suspect]
     Indication: HYPERTENSION
     Dosage: 80 MG, DAY
     Route: 048
     Dates: end: 20110606
  8. KETOPROFEN [Suspect]
     Indication: OSTEOARTHRITIS
     Dosage: 2 DF, PER DAY
     Route: 048
     Dates: start: 20070101, end: 20110606
  9. ESOMEPRAZOLE MAGNESIUM [Concomitant]
     Dosage: 20 MG, QD
     Dates: end: 20060601
  10. VALSARTAN  AND HYDROCHLOROTHIAZIDE [Suspect]
     Indication: HYPERTENSION
     Dosage: 80 MG VALSARTAN/12.5 MG HYDROCHLOROTHIAZIDE , QD
     Route: 048
     Dates: start: 20070101, end: 20110606
  11. KINERET [Concomitant]
     Dosage: 100 MG, PER DAY
     Route: 058
     Dates: start: 20110610
  12. ACETAMINOPHEN [Concomitant]
     Dosage: 1 G, TID
  13. OFLOXACIN [Concomitant]
     Dosage: 200 MG, UNK

REACTIONS (7)
  - SYNOVIAL FLUID CRYSTAL PRESENT [None]
  - GOUT [None]
  - RENAL FAILURE ACUTE [None]
  - KIDNEY ENLARGEMENT [None]
  - INFECTION [None]
  - PROSTATITIS ESCHERICHIA COLI [None]
  - SEPSIS [None]
